FAERS Safety Report 17256905 (Version 1)
Quarter: 2020Q1

REPORT INFORMATION
  Report Type: Spontaneous
  Country: US (occurrence: US)
  Receive Date: 20200109
  Receipt Date: 20200109
  Transmission Date: 20200409
  Serious: No
  Sender: FDA-Public Use
  Company Number: None

PATIENT
  Age: 12 Month
  Sex: Male
  Weight: 10.2 kg

DRUGS (2)
  1. MMR [Concomitant]
     Active Substance: MEASLES-MUMPS-RUBELLA VIRUS VACCINE
     Dates: start: 20191220, end: 20191220
  2. SYNAGIS [Suspect]
     Active Substance: PALIVIZUMAB
     Indication: ANTIVIRAL PROPHYLAXIS
     Dosage: ?          OTHER FREQUENCY:MONTHLY;?
     Route: 030
     Dates: start: 20191220, end: 20191220

REACTIONS (1)
  - Rash [None]

NARRATIVE: CASE EVENT DATE: 20191220
